FAERS Safety Report 7959356-5 (Version None)
Quarter: 2011Q4

REPORT INFORMATION
  Report Type: 
  Country: None (occurrence: None)
  Receive Date: 20111206
  Receipt Date: 20111129
  Transmission Date: 20120403
  Serious: Yes (Hospitalization, Other)
  Sender: FDA-Public Use
  Company Number: US-PFIZER INC-2011294250

PATIENT
  Age: 15 Month
  Sex: Male

DRUGS (1)
  1. ONDANSETRON HCL [Suspect]
     Dosage: 18 ONDANSETRON TABLETS (MIXTURE OF 4 AND 8 MG TABLETS)
     Route: 048

REACTIONS (5)
  - ACCIDENTAL OVERDOSE [None]
  - MENTAL STATUS CHANGES [None]
  - ELECTROCARDIOGRAM QT PROLONGED [None]
  - TOXICITY TO VARIOUS AGENTS [None]
  - SINUS TACHYCARDIA [None]
